FAERS Safety Report 25998854 (Version 1)
Quarter: 2025Q4

REPORT INFORMATION
  Report Type: Spontaneous
  Country: US (occurrence: US)
  Receive Date: 20251105
  Receipt Date: 20251105
  Transmission Date: 20260118
  Serious: No
  Sender: BAUSCH AND LOMB
  Company Number: US-BAUSCHBL-2025BNL031180

PATIENT
  Sex: Female

DRUGS (3)
  1. MIEBO [Suspect]
     Active Substance: PERFLUOROHEXYLOCTANE
     Indication: Product used for unknown indication
     Route: 047
  2. MIEBO [Suspect]
     Active Substance: PERFLUOROHEXYLOCTANE
  3. CARBOMER [Concomitant]
     Active Substance: CARBOMER
     Indication: Product used for unknown indication

REACTIONS (3)
  - Burning sensation [Unknown]
  - Vision blurred [Unknown]
  - Inability to afford medication [Unknown]
